FAERS Safety Report 8311300-7 (Version None)
Quarter: 2012Q2

REPORT INFORMATION
  Report Type: 
  Country: None (occurrence: None)
  Receive Date: 20120425
  Receipt Date: 20120417
  Transmission Date: 20120825
  Serious: Yes (Other)
  Sender: FDA-Public Use
  Company Number: CA-GLAXOSMITHKLINE-A0974122A

PATIENT
  Sex: Female

DRUGS (5)
  1. VERAPAMIL [Concomitant]
     Route: 065
  2. TYKERB [Suspect]
     Indication: BREAST CANCER
     Dosage: 1250MG PER DAY
     Route: 048
     Dates: start: 20120228
  3. XELODA [Concomitant]
     Route: 065
  4. ESCITALOPRAM [Concomitant]
     Route: 065
  5. ATIVAN [Concomitant]
     Route: 065

REACTIONS (2)
  - DYSPEPSIA [None]
  - SKIN ATROPHY [None]
